FAERS Safety Report 18342065 (Version 1)
Quarter: 2020Q4

REPORT INFORMATION
  Report Type: Spontaneous
  Country: US (occurrence: US)
  Receive Date: 20201005
  Receipt Date: 20201005
  Transmission Date: 20210113
  Serious: No
  Sender: FDA-Public Use
  Company Number: US-GW PHARMA-202009USGW03312

PATIENT

DRUGS (6)
  1. DEPAKOTE [Suspect]
     Active Substance: DIVALPROEX SODIUM
     Indication: PRODUCT USED FOR UNKNOWN INDICATION
     Dosage: 500 MILLIGRAM
     Route: 065
     Dates: end: 2020
  2. EPIDIOLEX [Suspect]
     Active Substance: CANNABIDIOL
     Indication: EPILEPSY
     Dosage: 600 MILLIGRAM, BID
     Route: 048
     Dates: start: 20200211
  3. EPIDIOLEX [Suspect]
     Active Substance: CANNABIDIOL
     Dosage: ADDITIONAL BATCH NUMBER
     Route: 048
  4. DEPAKOTE [Suspect]
     Active Substance: DIVALPROEX SODIUM
     Dosage: 250 MILLIGRAM (LOWER BY HALF)
     Route: 065
     Dates: start: 2020
  5. EPIDIOLEX [Suspect]
     Active Substance: CANNABIDIOL
     Dosage: ADDITIONAL BATCH NUMBER
     Route: 048
  6. ONFI [Concomitant]
     Active Substance: CLOBAZAM
     Indication: PRODUCT USED FOR UNKNOWN INDICATION
     Dosage: UNK
     Route: 065

REACTIONS (2)
  - Somnolence [Recovering/Resolving]
  - Hypersomnia [Recovering/Resolving]

NARRATIVE: CASE EVENT DATE: 2020
